FAERS Safety Report 18321814 (Version 1)
Quarter: 2020Q3

REPORT INFORMATION
  Report Type: Spontaneous
  Country: AT (occurrence: AT)
  Receive Date: 20200928
  Receipt Date: 20200928
  Transmission Date: 20201103
  Serious: Yes (Other)
  Sender: FDA-Public Use
  Company Number: AT-BAYER-2020-205055

PATIENT
  Age: 15 Year
  Sex: Male
  Weight: 43 kg

DRUGS (1)
  1. STIVARGA [Suspect]
     Active Substance: REGORAFENIB
     Indication: OSTEOSARCOMA
     Dosage: 160 MG, QD
     Route: 048
     Dates: start: 20200218

REACTIONS (1)
  - Cachexia [Not Recovered/Not Resolved]

NARRATIVE: CASE EVENT DATE: 20200418
